FAERS Safety Report 5911531-7 (Version None)
Quarter: 2008Q4

REPORT INFORMATION
  Report Type: 
  Country: None (occurrence: None)
  Receive Date: 20081002
  Receipt Date: 20080925
  Transmission Date: 20090506
  Serious: Yes (Disabling)
  Sender: FDA-Public Use
  Company Number: APP200800869

PATIENT
  Age: 23 Year
  Sex: Female
  Weight: 58.514 kg

DRUGS (11)
  1. MARCAINE [Suspect]
     Indication: LOCAL ANAESTHESIA
     Dosage: CONTINUOUS VIA PAIN PUMP, 0.5%, 25 ML, 0.5%
     Dates: start: 19990927
  2. MARCAINE [Suspect]
     Indication: MUSCULOSKELETAL PAIN
     Dosage: CONTINUOUS VIA PAIN PUMP, 0.5%, 25 ML, 0.5%
     Dates: start: 19990927
  3. MARCAINE [Suspect]
     Indication: LOCAL ANAESTHESIA
     Dosage: CONTINUOUS VIA PAIN PUMP, 0.5%, 25 ML, 0.5%
     Dates: start: 19990927
  4. MARCAINE [Suspect]
     Indication: MUSCULOSKELETAL PAIN
     Dosage: CONTINUOUS VIA PAIN PUMP, 0.5%, 25 ML, 0.5%
     Dates: start: 19990927
  5. MARCAINE [Suspect]
     Indication: LOCAL ANAESTHESIA
     Dosage: CONTINUOUS VIA PAIN PUMP, 0.5%, 25 ML, 0.5%
     Dates: start: 19990927
  6. MARCAINE [Suspect]
     Indication: MUSCULOSKELETAL PAIN
     Dosage: CONTINUOUS VIA PAIN PUMP, 0.5%, 25 ML, 0.5%
     Dates: start: 19990927
  7. MARCAINE WITH EPINEPHRINE (MARCAINE WITH EPINEPHRINE /00879801/) [Suspect]
     Indication: MUSCULOSKELETAL PAIN
     Dosage: 30 ML, 0.5%
     Dates: start: 19990929
  8. DONJOY PAINBUSTER PAIN PUMP [Suspect]
     Indication: MUSCULOSKELETAL PAIN
     Dates: start: 19990927
  9. KEFZOL [Concomitant]
  10. LACTATED RINGERS (FLEBOBAG RING LACT) [Concomitant]
  11. CARBATROL [Concomitant]

REACTIONS (4)
  - BONE MARROW OEDEMA [None]
  - CHONDROLYSIS [None]
  - MUSCULOSKELETAL PAIN [None]
  - OSTEOARTHRITIS [None]
